FAERS Safety Report 6745629-0 (Version None)
Quarter: 2010Q2

REPORT INFORMATION
  Report Type: 
  Country: None (occurrence: None)
  Receive Date: 20100528
  Receipt Date: 20100525
  Transmission Date: 20101027
  Serious: Yes (Other)
  Sender: FDA-Public Use
  Company Number: IT-TEVA-235801ISR

PATIENT
  Sex: Male

DRUGS (1)
  1. FLUOROURACIL [Suspect]

REACTIONS (1)
  - ATRIAL FIBRILLATION [None]
